FAERS Safety Report 8798063 (Version 1)
Quarter: 2012Q4

REPORT INFORMATION
  Report Type: Spontaneous
  Country: US (occurrence: None)
  Receive Date: 20120913
  Receipt Date: 20120913
  Transmission Date: 20130627
  Serious: Yes (Other)
  Sender: FDA-Public Use
  Company Number: TPA2012A06310

PATIENT
  Age: 42 Year
  Sex: Female
  Weight: 117.48 kg

DRUGS (4)
  1. DEXILANT [Suspect]
     Dosage: Therapy Dates: a while

60 mg, 1 in 1 D, Per oral
     Route: 048
  2. DEXILANT [Suspect]
     Dosage: 60 mg, 1 in 1 D, Per oral
     Route: 048
     Dates: start: 201206
  3. HYDROCHLOROTHIAZIDE [Concomitant]
  4. METFORMIN (METFORMIN) [Concomitant]

REACTIONS (2)
  - Pancreatic neoplasm [None]
  - Spleen disorder [None]
